FAERS Safety Report 13200952 (Version 2)
Quarter: 2017Q1

REPORT INFORMATION
  Report Type: Spontaneous
  Country: US (occurrence: US)
  Receive Date: 20170209
  Receipt Date: 20170309
  Transmission Date: 20170428
  Serious: Yes (Other)
  Sender: FDA-Public Use
  Company Number: US-009507513-1702USA001136

PATIENT
  Age: 11 Year
  Sex: Male

DRUGS (3)
  1. TEMODAR [Suspect]
     Active Substance: TEMOZOLOMIDE
     Indication: METASTATIC GLIOMA
     Dosage: UNK
     Route: 048
  2. LOMUSTINE. [Suspect]
     Active Substance: LOMUSTINE
     Indication: METASTATIC GLIOMA
     Dosage: UNK
  3. PROCARBAZINE [Suspect]
     Active Substance: PROCARBAZINE
     Indication: METASTATIC GLIOMA
     Dosage: UNK

REACTIONS (1)
  - Reproductive toxicity [Unknown]
